FAERS Safety Report 25441753 (Version 1)
Quarter: 2025Q2

REPORT INFORMATION
  Report Type: Spontaneous
  Country: CN (occurrence: CN)
  Receive Date: 20250616
  Receipt Date: 20250616
  Transmission Date: 20250716
  Serious: Yes (Hospitalization)
  Sender: NOVARTIS
  Company Number: CN-002147023-NVSC2025CN094939

PATIENT
  Age: 66 Year
  Sex: Female

DRUGS (1)
  1. CARBAMAZEPINE [Suspect]
     Active Substance: CARBAMAZEPINE
     Indication: Ear pain
     Dosage: 200 MG, QD
     Route: 048
     Dates: start: 20250509, end: 20250510

REACTIONS (18)
  - Rash [Recovering/Resolving]
  - Pruritus [Recovering/Resolving]
  - Erythema [Unknown]
  - Papule [Unknown]
  - Drug eruption [Unknown]
  - Scratch [Unknown]
  - Genital disorder [Recovered/Resolved]
  - Discomfort [Unknown]
  - Mucosal ulceration [Recovered/Resolved]
  - Lip ulceration [Unknown]
  - Lip erythema [Unknown]
  - Mucosal erosion [Unknown]
  - Lip erosion [Unknown]
  - Effusion [Unknown]
  - Purulent discharge [Unknown]
  - Odynophagia [Unknown]
  - Hypophagia [Unknown]
  - Off label use [Unknown]

NARRATIVE: CASE EVENT DATE: 20250509
